FAERS Safety Report 6867211-7 (Version None)
Quarter: 2010Q3

REPORT INFORMATION
  Report Type: 
  Country: None (occurrence: None)
  Receive Date: 20100722
  Receipt Date: 20100718
  Transmission Date: 20110219
  Serious: Yes (Hospitalization)
  Sender: FDA-Public Use
  Company Number: B0666419A

PATIENT
  Sex: Male

DRUGS (1)
  1. ALBENDAZOLE [Suspect]
     Indication: HELMINTHIC INFECTION
     Route: 048
     Dates: start: 20100609

REACTIONS (4)
  - GASTRITIS [None]
  - SEDATION [None]
  - SOMNOLENCE [None]
  - VOMITING [None]
